FAERS Safety Report 9742559 (Version 1)
Quarter: 2013Q4

REPORT INFORMATION
  Report Type: Report from Study
  Country: CA (occurrence: CA)
  Receive Date: 20131210
  Receipt Date: 20131210
  Transmission Date: 20140711
  Serious: Yes (Hospitalization)
  Sender: FDA-Public Use
  Company Number: CA-JNJFOC-20131202598

PATIENT
  Age: 24 Year
  Sex: Male
  Weight: 61 kg

DRUGS (1)
  1. REMICADE [Suspect]
     Indication: COLITIS ULCERATIVE
     Route: 042
     Dates: start: 201212

REACTIONS (5)
  - Haematochezia [Recovering/Resolving]
  - Malaise [Recovering/Resolving]
  - Melaena [Recovering/Resolving]
  - Weight decreased [Recovering/Resolving]
  - Colitis ulcerative [Unknown]
